FAERS Safety Report 25497342 (Version 1)
Quarter: 2025Q3

REPORT INFORMATION
  Report Type: Spontaneous
  Country: US (occurrence: US)
  Receive Date: 20250701
  Receipt Date: 20250701
  Transmission Date: 20251021
  Serious: Yes (Death)
  Sender: GRIFOLS
  Company Number: US-IGSA-BIG0036174

PATIENT
  Age: 1 Day
  Sex: Female

DRUGS (1)
  1. HUMAN IMMUNOGLOBULIN G [Suspect]
     Active Substance: HUMAN IMMUNOGLOBULIN G
     Indication: Gestational alloimmune liver disease
     Route: 064

REACTIONS (2)
  - Death neonatal [Fatal]
  - Acute respiratory failure [Fatal]
